FAERS Safety Report 18906773 (Version 2)
Quarter: 2021Q1

REPORT INFORMATION
  Report Type: Report from Study
  Country: CA (occurrence: CA)
  Receive Date: 20210217
  Receipt Date: 20210330
  Transmission Date: 20210420
  Serious: Yes (Other)
  Sender: FDA-Public Use
  Company Number: CA-NALPROPION PHARMACEUTICALS INC.-2021-012192

PATIENT

DRUGS (7)
  1. CONTRAVE [Suspect]
     Active Substance: BUPROPION HYDROCHLORIDE\NALTREXONE HYDROCHLORIDE
     Indication: WEIGHT CONTROL
     Dosage: 90 MILLIGRAM/ 8 MILLIGRAM (1 DOSAGE FORMS, 1 IN 1 D)
     Route: 048
     Dates: start: 20210106, end: 20210112
  2. CONTRAVE [Suspect]
     Active Substance: BUPROPION HYDROCHLORIDE\NALTREXONE HYDROCHLORIDE
     Dosage: 90MG/8MG(SECOND ATTEMPT:PATIENT STARTED AGAIN)30/JAN/2021 TO APPROX 13/FEB/2021(2 DF, 1 IN 12 HR)
     Route: 048
     Dates: start: 202101, end: 202102
  3. ADVIL [Concomitant]
     Active Substance: IBUPROFEN
     Indication: HEADACHE
     Dosage: UNK
  4. TYLENOL [Concomitant]
     Active Substance: ACETAMINOPHEN
     Indication: HEADACHE
     Dosage: UNK
  5. CONTRAVE [Suspect]
     Active Substance: BUPROPION HYDROCHLORIDE\NALTREXONE HYDROCHLORIDE
     Dosage: 90 MILLIGRAM/ 8 MILLIGRAM (2 DOSAGE FORMS, 1 IN 12 HR)
     Route: 048
     Dates: start: 202101, end: 20210124
  6. CONTRAVE [Suspect]
     Active Substance: BUPROPION HYDROCHLORIDE\NALTREXONE HYDROCHLORIDE
     Dosage: 90 MILLIGRAM/ 8 MILLIGRAM (1 DOSAGE FORMS, 1 IN 12 HR)
     Route: 048
     Dates: start: 20210113, end: 202101
  7. SINGULAIR [Concomitant]
     Active Substance: MONTELUKAST SODIUM
     Indication: HYPERSENSITIVITY
     Dosage: AT BED TIME (1 DOSAGE FORMS, 1 IN 1 D)
     Route: 048

REACTIONS (11)
  - Ear infection bacterial [Recovered/Resolved]
  - Condition aggravated [Recovered/Resolved]
  - Headache [Recovered/Resolved]
  - Facial pain [Unknown]
  - Insomnia [Not Recovered/Not Resolved]
  - Nausea [Not Recovered/Not Resolved]
  - Fatigue [Recovered/Resolved]
  - Malaise [Unknown]
  - Flatulence [Not Recovered/Not Resolved]
  - Abdominal discomfort [Unknown]
  - Drug titration error [Unknown]

NARRATIVE: CASE EVENT DATE: 202101
